FAERS Safety Report 21607422 (Version 5)
Quarter: 2023Q1

REPORT INFORMATION
  Report Type: Report from Study
  Country: US (occurrence: US)
  Receive Date: 20221117
  Receipt Date: 20230222
  Transmission Date: 20230417
  Serious: No
  Sender: FDA-Public Use
  Company Number: US-002147023-NVSC2022US259047

PATIENT
  Sex: Female

DRUGS (1)
  1. PIQRAY [Suspect]
     Active Substance: ALPELISIB
     Indication: Product used for unknown indication
     Dosage: UNK
     Route: 048

REACTIONS (8)
  - Red blood cell count increased [Unknown]
  - Carbohydrate antigen 125 increased [Unknown]
  - Blood glucose increased [Recovering/Resolving]
  - Stomatitis [Unknown]
  - Diarrhoea [Unknown]
  - Dehydration [Unknown]
  - Weight decreased [Unknown]
  - Decreased appetite [Unknown]
